FAERS Safety Report 12968796 (Version 3)
Quarter: 2017Q1

REPORT INFORMATION
  Report Type: Spontaneous
  Country: US (occurrence: US)
  Receive Date: 20161123
  Receipt Date: 20170119
  Transmission Date: 20170428
  Serious: Yes (Other)
  Sender: FDA-Public Use
  Company Number: US-SEPTODONT-201603738

PATIENT
  Age: 58 Year
  Sex: Female
  Weight: 65.8 kg

DRUGS (5)
  1. LIDOCAINE HYDROCHLORIDE 2% WITH EPINEPHRINE 1:100,000 INJECTION [Suspect]
     Active Substance: EPINEPHRINE\LIDOCAINE HYDROCHLORIDE
     Indication: LOCAL ANAESTHESIA
     Route: 004
     Dates: start: 20160815, end: 20160815
  2. DIPHENHYDRAMINE HYDROCHLORIDE. [Concomitant]
     Active Substance: DIPHENHYDRAMINE HYDROCHLORIDE
     Dosage: ORAL CAPSULE
  3. CICLOPIROX. [Concomitant]
     Active Substance: CICLOPIROX
  4. BENZOCAINE. [Concomitant]
     Active Substance: BENZOCAINE
     Dates: start: 20161018, end: 20161018
  5. MULTI-VITAMIN DAILY ORAL TABLET [Concomitant]

REACTIONS (10)
  - Dyspnoea [Recovering/Resolving]
  - Dysphagia [Recovering/Resolving]
  - Dry mouth [Recovering/Resolving]
  - Emotional distress [Recovering/Resolving]
  - Dizziness [Recovering/Resolving]
  - Chest discomfort [Unknown]
  - Swelling face [Unknown]
  - Pharyngeal oedema [Recovered/Resolved]
  - Upper-airway cough syndrome [Not Recovered/Not Resolved]
  - Sensation of foreign body [Recovered/Resolved]

NARRATIVE: CASE EVENT DATE: 20160815
